FAERS Safety Report 14539566 (Version 1)
Quarter: 2018Q1

REPORT INFORMATION
  Report Type: Spontaneous
  Country: US (occurrence: US)
  Receive Date: 20180215
  Receipt Date: 20180215
  Transmission Date: 20180509
  Serious: Yes (Other)
  Sender: FDA-Public Use
  Company Number: None

PATIENT
  Sex: Female
  Weight: 76.5 kg

DRUGS (4)
  1. AUGMENTIN [Suspect]
     Active Substance: AMOXICILLIN\CLAVULANATE POTASSIUM
     Indication: EAR INFECTION
     Dosage: ?          QUANTITY:1 TABLET(S);?
     Route: 048
  2. VACOMYCIN [Suspect]
     Active Substance: VANCOMYCIN
     Indication: CLOSTRIDIUM DIFFICILE INFECTION
     Dosage: ?          QUANTITY:1 CAPSULE(S);?
     Route: 048
     Dates: start: 20171206, end: 20171215
  3. VITAMINS [Concomitant]
     Active Substance: VITAMINS
  4. FISH OIL [Concomitant]
     Active Substance: FISH OIL

REACTIONS (8)
  - Chills [None]
  - Diarrhoea [None]
  - Drug ineffective [None]
  - Abdominal distension [None]
  - Mucous stools [None]
  - Haematochezia [None]
  - Pyrexia [None]
  - Abdominal pain [None]

NARRATIVE: CASE EVENT DATE: 20171201
